FAERS Safety Report 25395488 (Version 1)
Quarter: 2025Q2

REPORT INFORMATION
  Report Type: Spontaneous
  Country: CN (occurrence: CN)
  Receive Date: 20250604
  Receipt Date: 20250604
  Transmission Date: 20250716
  Serious: Yes (Hospitalization)
  Sender: PFIZER
  Company Number: CN-PFIZER INC-PV202500065518

PATIENT
  Age: 53 Year
  Sex: Male

DRUGS (1)
  1. LINEZOLID [Suspect]
     Active Substance: LINEZOLID
     Indication: Pneumonia
     Dosage: 0.6 G, 2X/DAY
     Route: 048
     Dates: start: 20250406, end: 20250415

REACTIONS (1)
  - Thrombocytopenic purpura [Unknown]

NARRATIVE: CASE EVENT DATE: 20250415
